FAERS Safety Report 14359424 (Version 1)
Quarter: 2018Q1

REPORT INFORMATION
  Report Type: Spontaneous
  Country: US (occurrence: US)
  Receive Date: 20180105
  Receipt Date: 20180105
  Transmission Date: 20180509
  Serious: No
  Sender: FDA-Public Use
  Company Number: US-SA-2017SA204191

PATIENT
  Sex: Male

DRUGS (2)
  1. ZANTAC [Suspect]
     Active Substance: RANITIDINE HYDROCHLORIDE
     Indication: DYSPEPSIA
     Route: 048
  2. ZANTAC [Suspect]
     Active Substance: RANITIDINE HYDROCHLORIDE
     Indication: DYSPEPSIA
     Dosage: DOSE AND DAILY DOSE: 3 OR 4 150 MG
     Route: 048

REACTIONS (4)
  - Dyspepsia [Unknown]
  - Drug screen false positive [Unknown]
  - Condition aggravated [Unknown]
  - Incorrect dose administered [Unknown]
